FAERS Safety Report 8530023-2 (Version None)
Quarter: 2012Q3

REPORT INFORMATION
  Report Type: 
  Country: None (occurrence: None)
  Receive Date: 20120723
  Receipt Date: 20120717
  Transmission Date: 20120928
  Serious: No
  Sender: FDA-Public Use
  Company Number: PHHY2011US41282

PATIENT
  Sex: Female

DRUGS (7)
  1. VERAPAMIL [Concomitant]
  2. LUNESTA [Concomitant]
     Dosage: 2 MG, UNK
  3. TASIGNA [Suspect]
     Dosage: 200 MG, QD
     Route: 048
  4. SAVELLA [Concomitant]
  5. VITAMIN D [Concomitant]
  6. LORTAB [Concomitant]
  7. ACIPHEX [Concomitant]
     Dosage: 20 MG, UNK

REACTIONS (2)
  - NAUSEA [None]
  - VOMITING [None]
